FAERS Safety Report 8337882-7 (Version None)
Quarter: 2012Q2

REPORT INFORMATION
  Report Type: 
  Country: None (occurrence: None)
  Receive Date: 20120504
  Receipt Date: 20120427
  Transmission Date: 20120825
  Serious: Yes (Death, Life-Threatening, Other)
  Sender: FDA-Public Use
  Company Number: BR-ELI_LILLY_AND_COMPANY-BR201205000513

PATIENT
  Sex: Female
  Weight: 89.1 kg

DRUGS (5)
  1. ONDANSETRON [Concomitant]
     Dosage: 8 MG, UNK
     Route: 042
  2. DOCETAXEL [Concomitant]
     Indication: METASTASIS
     Dosage: UNK, UNKNOWN
     Route: 042
  3. GEMZAR [Suspect]
     Indication: METASTASIS
     Dosage: 1746 MG, UNKNOWN
     Route: 042
     Dates: start: 20120213
  4. DEXAMETHASONE [Concomitant]
     Dosage: 20 MG, UNKNOWN
     Route: 042
  5. HEPARIN [Concomitant]

REACTIONS (4)
  - NEOPLASM PROGRESSION [None]
  - FEBRILE NEUTROPENIA [None]
  - CHOLESTASIS [None]
  - SEPTIC SHOCK [None]
